FAERS Safety Report 8515895-X (Version None)
Quarter: 2012Q3

REPORT INFORMATION
  Report Type: 
  Country: None (occurrence: None)
  Receive Date: 20120705
  Receipt Date: 20120622
  Transmission Date: 20120928
  Serious: Yes (Other)
  Sender: FDA-Public Use
  Company Number: 2012SP031417

PATIENT
  Age: 64 Year
  Sex: Male
  Weight: 74 kg

DRUGS (8)
  1. PEG-INTRON [Suspect]
     Indication: HEPATITIS C
     Dosage: 1.5 MCG/KG;QW;SC
     Route: 058
  2. EPINASTINE HYDROCHLORIDE [Concomitant]
  3. ANTEBATE [Concomitant]
  4. ALLOPURINOL [Concomitant]
  5. PREDNISOLONE [Concomitant]
  6. TELAVIC (ANTIVIRALS NOS) [Suspect]
     Indication: HEPATITIS C
     Dosage: 2250 MG;QD;PO
     Route: 048
     Dates: start: 20120524
  7. REBETOL [Suspect]
     Indication: HEPATITIS C
     Dosage: 800 MG;QD;PO 600 MG;QD;PO
     Route: 048
     Dates: start: 20120531
  8. REBETOL [Suspect]
     Indication: HEPATITIS C
     Dosage: 800 MG;QD;PO 600 MG;QD;PO
     Route: 048
     Dates: end: 20120530

REACTIONS (4)
  - SKIN DISORDER [None]
  - HAEMOGLOBIN DECREASED [None]
  - SKIN LESION [None]
  - BLOOD URIC ACID INCREASED [None]
